FAERS Safety Report 25557213 (Version 2)
Quarter: 2025Q3

REPORT INFORMATION
  Report Type: Spontaneous
  Country: SG (occurrence: SG)
  Receive Date: 20250715
  Receipt Date: 20250724
  Transmission Date: 20251020
  Serious: Yes (Other)
  Sender: MERCK SHARP & DOHME LLC
  Company Number: SG-009507513-2306136

PATIENT
  Sex: Male

DRUGS (5)
  1. GARDASIL 9 [Suspect]
     Active Substance: HUMAN PAPILLOMAVIRUS TYPE 11 L1 CAPSID PROTEIN ANTIGEN\HUMAN PAPILLOMAVIRUS TYPE 16 L1 CAPSID PROTEI
     Indication: Prophylaxis
  2. STERILE DILUENT (WATER) [Suspect]
     Active Substance: WATER
     Indication: Prophylaxis
  3. VARICELLA-ZOSTER VIRUS STRAIN OKA/MERCK LIVE ANTIGEN [Suspect]
     Active Substance: VARICELLA-ZOSTER VIRUS STRAIN OKA/MERCK LIVE ANTIGEN
     Indication: Prophylaxis
  4. TETANUS ANTITOXIN [Suspect]
     Active Substance: TETANUS ANTITOXIN
     Indication: Prophylaxis
  5. INFLUENZA VIRUS VACCINE [Suspect]
     Active Substance: INFLUENZA VIRUS VACCINE
     Indication: Prophylaxis

REACTIONS (7)
  - Syncope [Recovered/Resolved]
  - Contusion [Recovering/Resolving]
  - Skin abrasion [Recovering/Resolving]
  - Muscle strain [Unknown]
  - Skin lesion [Unknown]
  - Head injury [Unknown]
  - Spinal pain [Unknown]
